FAERS Safety Report 18873926 (Version 3)
Quarter: 2022Q4

REPORT INFORMATION
  Report Type: Spontaneous
  Country: US (occurrence: US)
  Receive Date: 20210210
  Receipt Date: 20221005
  Transmission Date: 20230112
  Serious: No
  Sender: FDA-Public Use
  Company Number: US-PFIZER INC-2021115958

PATIENT
  Age: 60 Year
  Sex: Female

DRUGS (4)
  1. IBRANCE [Interacting]
     Active Substance: PALBOCICLIB
     Dosage: UNK
  2. RAPAMUNE [Interacting]
     Active Substance: SIROLIMUS
     Indication: Lung transplant
     Dosage: 1 MG, DAILY
     Route: 048
  3. RAPAMUNE [Interacting]
     Active Substance: SIROLIMUS
     Dosage: UNK, CYCLIC (THREE WEEKS ON AND ONE WEEK OFF)
  4. RAPAMUNE [Interacting]
     Active Substance: SIROLIMUS
     Dosage: 2 MG, DAILY
     Route: 048

REACTIONS (3)
  - Off label use [Unknown]
  - Drug interaction [Unknown]
  - Laboratory test abnormal [Unknown]
